FAERS Safety Report 6456981-8 (Version None)
Quarter: 2009Q4

REPORT INFORMATION
  Report Type: 
  Country: None (occurrence: None)
  Receive Date: 20091125
  Receipt Date: 20091117
  Transmission Date: 20100525
  Serious: Yes (Other)
  Sender: FDA-Public Use
  Company Number: BR-PFIZER INC-2009199253

PATIENT
  Age: 56 Year
  Sex: Male
  Weight: 77 kg

DRUGS (4)
  1. ZOLTEC [Suspect]
     Indication: ONYCHOMYCOSIS
     Dosage: UNK MG, WEEKLY
     Route: 048
  2. FLUCONAZOLE [Suspect]
     Dosage: UNK
     Dates: start: 20090413
  3. CICLOPIROX OLAMINE [Suspect]
     Dosage: UNK
     Dates: start: 20090201
  4. GLICLAZIDE [Concomitant]
     Dosage: 30 MG, UNK

REACTIONS (3)
  - DRUG EFFECT DECREASED [None]
  - DRUG INEFFECTIVE [None]
  - ONYCHOMADESIS [None]
